FAERS Safety Report 22169104 (Version 1)
Quarter: 2023Q2

REPORT INFORMATION
  Report Type: Spontaneous
  Country: US (occurrence: US)
  Receive Date: 20230404
  Receipt Date: 20230404
  Transmission Date: 20230722
  Serious: Yes (Other)
  Sender: FDA-Public Use
  Company Number: US-002147023-NVSC2023US076572

PATIENT
  Age: 90 Year
  Sex: Female

DRUGS (3)
  1. BEOVU [Suspect]
     Active Substance: BROLUCIZUMAB-DBLL
     Indication: Age-related macular degeneration
     Dosage: UNK (LEFT EYE, OS) (TIME FROM PREVIOUS 56)
     Route: 065
     Dates: start: 20200114
  2. BEOVU [Suspect]
     Active Substance: BROLUCIZUMAB-DBLL
     Dosage: UNK
     Route: 065
     Dates: start: 20200407
  3. BEOVU [Suspect]
     Active Substance: BROLUCIZUMAB-DBLL
     Dosage: UNK (LEFT EYE, OS) (TIME FROM PREVIOUS 84)
     Route: 065
     Dates: start: 20200507

REACTIONS (4)
  - Retinal vasculitis [Not Recovered/Not Resolved]
  - Iridocyclitis [Recovered/Resolved]
  - Iritis [Unknown]
  - Visual impairment [Unknown]

NARRATIVE: CASE EVENT DATE: 20200411
